FAERS Safety Report 7910800-9 (Version None)
Quarter: 2011Q4

REPORT INFORMATION
  Report Type: 
  Country: None (occurrence: None)
  Receive Date: 20111113
  Receipt Date: 20111102
  Transmission Date: 20120403
  Serious: Yes (Other)
  Sender: FDA-Public Use
  Company Number: FR-BRISTOL-MYERS SQUIBB COMPANY-16040545

PATIENT
  Age: 55 Year
  Sex: Female

DRUGS (3)
  1. VALIUM [Concomitant]
  2. SOLIAN [Suspect]
     Indication: DYSKINESIA
     Dosage: 17MAY11:600MG/D,12JUL11 DOSE REDCD TO 400MG/D,16AU11 REDCD TO 200MG/D,24AU11 INCRES TO 400MG/D.TAB
     Dates: start: 20110201
  3. ABILIFY [Suspect]
     Dosage: ON 12-JUL-2011, DOSE INCREASED TO 30 MG/D
     Dates: start: 20110607, end: 20110824

REACTIONS (2)
  - PSYCHOTIC DISORDER [None]
  - CONSTIPATION [None]
